FAERS Safety Report 9785367 (Version 1)
Quarter: 2013Q4

REPORT INFORMATION
  Report Type: Spontaneous
  Country: ES (occurrence: ES)
  Receive Date: 20131227
  Receipt Date: 20131227
  Transmission Date: 20140711
  Serious: Yes (Other)
  Sender: FDA-Public Use
  Company Number: PHHY2013ES152706

PATIENT
  Age: 80 Year
  Sex: Male

DRUGS (3)
  1. ATORVASTATIN [Suspect]
     Indication: CEREBROVASCULAR ACCIDENT
     Dosage: 80 MG, DAILY
  2. SITAGLIPTIN [Interacting]
     Indication: DIABETES MELLITUS MANAGEMENT
  3. METFORMIN [Concomitant]
     Indication: DIABETES MELLITUS MANAGEMENT

REACTIONS (7)
  - Rhabdomyolysis [Recovering/Resolving]
  - Asthenia [Recovering/Resolving]
  - Renal failure acute [Recovering/Resolving]
  - Myalgia [Recovering/Resolving]
  - Muscle spasms [Recovering/Resolving]
  - Muscle contractions involuntary [Recovering/Resolving]
  - Drug interaction [Recovering/Resolving]
